FAERS Safety Report 6119124-6 (Version None)
Quarter: 2009Q1

REPORT INFORMATION
  Report Type: 
  Country: None (occurrence: None)
  Receive Date: 20090316
  Receipt Date: 20090310
  Transmission Date: 20090719
  Serious: Yes (Life-Threatening, Hospitalization)
  Sender: FDA-Public Use
  Company Number: JP-BAYER-200910700BYL

PATIENT
  Age: 59 Year
  Sex: Female
  Weight: 56 kg

DRUGS (66)
  1. FLUDARA [Suspect]
     Indication: STEM CELL TRANSPLANT
     Route: 042
     Dates: start: 20080924, end: 20080929
  2. BUSULFAN [Suspect]
     Indication: STEM CELL TRANSPLANT
     Route: 042
     Dates: start: 20080925, end: 20080926
  3. PROGRAF [Suspect]
     Indication: PROPHYLAXIS AGAINST GRAFT VERSUS HOST DISEASE
     Dosage: UNIT DOSE: 5 MG
     Route: 042
     Dates: start: 20081017, end: 20081018
  4. PROGRAF [Suspect]
     Dosage: UNIT DOSE: 5 MG
     Route: 042
     Dates: start: 20081013, end: 20081014
  5. PROGRAF [Suspect]
     Dosage: UNIT DOSE: 5 MG
     Route: 042
     Dates: start: 20081015, end: 20081016
  6. PROGRAF [Suspect]
     Dosage: UNIT DOSE: 5 MG
     Route: 042
     Dates: start: 20081019, end: 20081020
  7. PROGRAF [Suspect]
     Dosage: UNIT DOSE: 5 MG
     Route: 042
     Dates: start: 20081022, end: 20081022
  8. PROGRAF [Suspect]
     Dosage: UNIT DOSE: 5 MG
     Route: 042
     Dates: start: 20081024, end: 20081025
  9. PROGRAF [Suspect]
     Dosage: UNIT DOSE: 5 MG
     Route: 042
     Dates: start: 20081102, end: 20081103
  10. PROGRAF [Suspect]
     Dosage: UNIT DOSE: 5 MG
     Route: 042
     Dates: start: 20081114, end: 20081116
  11. PROGRAF [Suspect]
     Dosage: UNIT DOSE: 5 MG
     Route: 042
     Dates: start: 20081108, end: 20081113
  12. PROGRAF [Suspect]
     Dosage: UNIT DOSE: 5 MG
     Route: 042
     Dates: start: 20081129, end: 20081130
  13. PROGRAF [Suspect]
     Dosage: UNIT DOSE: 5 MG
     Route: 042
     Dates: start: 20081127, end: 20081128
  14. PROGRAF [Suspect]
     Dosage: UNIT DOSE: 5 MG
     Route: 042
     Dates: start: 20081125, end: 20081126
  15. PROGRAF [Suspect]
     Dosage: UNIT DOSE: 5 MG
     Route: 042
     Dates: start: 20081123, end: 20081124
  16. PROGRAF [Suspect]
     Dosage: UNIT DOSE: 5 MG
     Route: 042
     Dates: start: 20081104, end: 20081105
  17. PROGRAF [Suspect]
     Dosage: UNIT DOSE: 5 MG
     Route: 042
     Dates: start: 20081026, end: 20081101
  18. PROGRAF [Suspect]
     Dosage: UNIT DOSE: 5 MG
     Route: 042
     Dates: start: 20081023, end: 20081023
  19. PROGRAF [Suspect]
     Dosage: UNIT DOSE: 1 MG
     Route: 048
     Dates: start: 20081203, end: 20081203
  20. PROGRAF [Suspect]
     Dosage: UNIT DOSE: 1 MG
     Route: 048
     Dates: start: 20081204, end: 20081211
  21. PROGRAF [Suspect]
     Dosage: UNIT DOSE: 5 MG
     Route: 042
     Dates: start: 20081001, end: 20081001
  22. PROGRAF [Suspect]
     Dosage: UNIT DOSE: 5 MG
     Route: 042
     Dates: start: 20081002, end: 20081002
  23. PROGRAF [Suspect]
     Dosage: UNIT DOSE: 5 MG
     Route: 042
     Dates: start: 20081003, end: 20081003
  24. PROGRAF [Suspect]
     Dosage: UNIT DOSE: 5 MG
     Route: 042
     Dates: start: 20081004, end: 20081007
  25. PROGRAF [Suspect]
     Dosage: UNIT DOSE: 5 MG
     Route: 042
     Dates: start: 20081008, end: 20081012
  26. PROGRAF [Suspect]
     Dosage: UNIT DOSE: 5 MG
     Route: 042
     Dates: start: 20081106, end: 20081107
  27. PROGRAF [Suspect]
     Dosage: UNIT DOSE: 5 MG
     Route: 042
     Dates: start: 20081201, end: 20081202
  28. PROGRAF [Suspect]
     Dosage: UNIT DOSE: 5 MG
     Route: 042
     Dates: start: 20081121, end: 20081122
  29. PROGRAF [Suspect]
     Dosage: UNIT DOSE: 5 MG
     Route: 042
     Dates: start: 20081117, end: 20081120
  30. PROGRAF [Suspect]
     Dosage: UNIT DOSE: 5 MG
     Route: 042
     Dates: start: 20081021, end: 20081021
  31. PREDONINE [Suspect]
     Indication: GRAFT VERSUS HOST DISEASE
     Route: 042
     Dates: start: 20081020, end: 20081108
  32. PREDONINE [Suspect]
     Route: 042
     Dates: start: 20081115, end: 20081120
  33. PREDONINE [Suspect]
     Route: 042
     Dates: start: 20081109, end: 20081114
  34. ZOVIRAX [Concomitant]
     Indication: INFECTION PROPHYLAXIS
     Dosage: UNIT DOSE: 250 MG
     Route: 041
     Dates: start: 20080929, end: 20081017
  35. ZOVIRAX [Concomitant]
     Dosage: UNIT DOSE: 200 MG
     Route: 048
     Dates: start: 20081018, end: 20081106
  36. ZOVIRAX [Concomitant]
     Dosage: UNIT DOSE: 200 MG
     Route: 048
     Dates: start: 20080918, end: 20081010
  37. ZOVIRAX [Concomitant]
     Dosage: UNIT DOSE: 200 MG
     Route: 048
     Dates: start: 20081107, end: 20081211
  38. URSO 250 [Concomitant]
     Dosage: UNIT DOSE: 100 MG
     Route: 048
     Dates: start: 20081107, end: 20081210
  39. URSO 250 [Concomitant]
     Dosage: UNIT DOSE: 100 MG
     Route: 048
     Dates: start: 20081019, end: 20081106
  40. URSO 250 [Concomitant]
     Dosage: UNIT DOSE: 100 MG
     Route: 048
     Dates: start: 20080918, end: 20081015
  41. BAKTAR [Concomitant]
     Indication: INFECTION PROPHYLAXIS
     Dosage: UNIT DOSE: 80 MG
     Route: 048
     Dates: start: 20081128, end: 20081211
  42. BAKTAR [Concomitant]
     Dosage: UNIT DOSE: 80 MG
     Route: 048
     Dates: start: 20081107, end: 20081127
  43. BAKTAR [Concomitant]
     Dosage: UNIT DOSE: 80 MG
     Route: 048
     Dates: start: 20080918, end: 20080930
  44. BAKTAR [Concomitant]
     Dosage: UNIT DOSE: 80 MG
     Route: 048
     Dates: start: 20081024, end: 20081106
  45. CIPROXAN [Concomitant]
     Indication: INFECTION PROPHYLAXIS
     Dosage: UNIT DOSE: 100 MG
     Route: 048
     Dates: start: 20081211, end: 20081211
  46. CIPROXAN [Concomitant]
     Dosage: UNIT DOSE: 100 MG
     Route: 048
     Dates: start: 20080918, end: 20081010
  47. FRAGMIN [Concomitant]
     Route: 041
     Dates: start: 20080921, end: 20081031
  48. VALPROATE SODIUM [Concomitant]
     Route: 048
     Dates: start: 20080923, end: 20080927
  49. ENTERONON R [Concomitant]
     Indication: INFECTION
     Dosage: UNIT DOSE: 1 G
     Route: 048
     Dates: start: 20080924, end: 20080930
  50. ENTERONON R [Concomitant]
     Dosage: UNIT DOSE: 1 G
     Route: 048
     Dates: start: 20080923, end: 20080923
  51. ENTERONON R [Concomitant]
     Dosage: UNIT DOSE: 1 G
     Route: 048
     Dates: start: 20081003, end: 20081015
  52. ENTERONON R [Concomitant]
     Dosage: UNIT DOSE: 1 G
     Route: 048
     Dates: start: 20081022, end: 20081106
  53. CYTARABINE [Concomitant]
     Indication: ADULT T-CELL LYMPHOMA/LEUKAEMIA
     Route: 028
     Dates: start: 20080926, end: 20080926
  54. METHOTREXATE [Concomitant]
     Indication: STEM CELL TRANSPLANT
     Route: 028
     Dates: start: 20080926, end: 20080926
  55. DEXAMETHASONE SODIUM PHOSPHATE [Concomitant]
     Indication: STEM CELL TRANSPLANT
     Route: 028
     Dates: start: 20080926, end: 20080926
  56. PRIMPERAN [Concomitant]
     Dosage: UNIT DOSE: 10 MG
     Route: 042
     Dates: start: 20080929, end: 20080930
  57. PRIMPERAN [Concomitant]
     Dosage: UNIT DOSE: 10 MG
     Route: 042
     Dates: start: 20081020, end: 20081020
  58. PRIMPERAN [Concomitant]
     Dosage: UNIT DOSE: 10 MG
     Route: 042
     Dates: start: 20081111, end: 20081123
  59. PRIMPERAN [Concomitant]
     Dosage: UNIT DOSE: 10 MG
     Route: 042
     Dates: start: 20081006, end: 20081006
  60. PRIMPERAN [Concomitant]
     Dosage: UNIT DOSE: 10 MG
     Route: 042
     Dates: start: 20081018, end: 20081018
  61. KYTRIL [Concomitant]
     Dosage: UNIT DOSE: 3 MG
     Route: 042
     Dates: start: 20080929, end: 20080929
  62. KYTRIL [Concomitant]
     Dosage: UNIT DOSE: 3 MG
     Route: 042
     Dates: start: 20080930, end: 20080930
  63. KYTRIL [Concomitant]
     Dosage: UNIT DOSE: 3 MG
     Route: 042
     Dates: start: 20081008, end: 20081008
  64. GASTER [Concomitant]
     Dosage: UNIT DOSE: 20 MG
     Route: 042
     Dates: start: 20080929, end: 20081017
  65. SOLU-MEDROL [Concomitant]
     Dosage: AS USED: 125 MG
     Route: 042
     Dates: start: 20081002, end: 20081002
  66. FUNGUARD [Concomitant]
     Indication: INFECTION PROPHYLAXIS
     Dosage: AS USED: 50 MG
     Route: 041
     Dates: start: 20080918, end: 20081009

REACTIONS (7)
  - ACUTE GRAFT VERSUS HOST DISEASE [None]
  - BONE MARROW FAILURE [None]
  - CYSTITIS HAEMORRHAGIC [None]
  - CYTOMEGALOVIRUS VIRAEMIA [None]
  - FEBRILE NEUTROPENIA [None]
  - HEPATIC FUNCTION ABNORMAL [None]
  - NAUSEA [None]
